FAERS Safety Report 10241394 (Version 2)
Quarter: 2014Q3

REPORT INFORMATION
  Report Type: Spontaneous
  Country: US (occurrence: None)
  Receive Date: 20140613
  Receipt Date: 20140805
  Transmission Date: 20150326
  Serious: Yes (Other)
  Sender: FDA-Public Use
  Company Number: 2014VER00012

PATIENT
  Age: 24 Year
  Sex: Female

DRUGS (3)
  1. UNSPECIFIED  BIRTH CONTROL PILLS [Concomitant]
  2. MYORISAN [Suspect]
     Active Substance: ISOTRETINOIN
     Dosage: 1X/DAY
     Dates: start: 20140222, end: 20140528
  3. MYORISAN [Suspect]
     Active Substance: ISOTRETINOIN
     Dates: start: 20140321, end: 20140528

REACTIONS (2)
  - Maternal exposure during pregnancy [None]
  - Selective abortion [None]

NARRATIVE: CASE EVENT DATE: 20140423
